FAERS Safety Report 14893821 (Version 1)
Quarter: 2018Q2

REPORT INFORMATION
  Report Type: Spontaneous
  Country: PL (occurrence: PL)
  Receive Date: 20180514
  Receipt Date: 20180514
  Transmission Date: 20180711
  Serious: Yes (Death, Other)
  Sender: FDA-Public Use
  Company Number: PHHY2018PL006923

PATIENT
  Age: 26 Year
  Sex: Female

DRUGS (3)
  1. EVEROLIMUS. [Suspect]
     Active Substance: EVEROLIMUS
     Dosage: 4.08 NG/ML, UNK
     Route: 065
     Dates: start: 201304
  2. EVEROLIMUS. [Suspect]
     Active Substance: EVEROLIMUS
     Dosage: 5.08 NG/ML, UNK
     Route: 065
     Dates: start: 201306
  3. EVEROLIMUS. [Suspect]
     Active Substance: EVEROLIMUS
     Indication: PRODUCT USED FOR UNKNOWN INDICATION
     Dosage: 10 MG, QD
     Route: 065

REACTIONS (12)
  - Abdominal pain lower [Unknown]
  - White blood cell count decreased [Unknown]
  - C-reactive protein increased [Unknown]
  - Septic shock [Fatal]
  - Escherichia infection [Unknown]
  - Ovarian cyst torsion [Unknown]
  - Hypotension [Unknown]
  - Ovarian cyst [Unknown]
  - Blood cholesterol increased [Unknown]
  - Multiple organ dysfunction syndrome [Fatal]
  - Ascites [Unknown]
  - Blood count abnormal [Unknown]

NARRATIVE: CASE EVENT DATE: 201304
